FAERS Safety Report 7743742-2 (Version None)
Quarter: 2011Q3

REPORT INFORMATION
  Report Type: 
  Country: None (occurrence: None)
  Receive Date: 20110909
  Receipt Date: 20110909
  Transmission Date: 20111222
  Serious: Yes (Hospitalization)
  Sender: FDA-Public Use
  Company Number: None

PATIENT
  Sex: Female
  Weight: 56.6996 kg

DRUGS (2)
  1. MACROBID [Suspect]
     Indication: CYSTITIS
     Dosage: 100 MCG 2 DAILY
     Dates: start: 20110818
  2. MACROBID [Suspect]
     Indication: CYSTITIS
     Dosage: 100 MCG 2 DAILY
     Dates: start: 20110820

REACTIONS (6)
  - HEADACHE [None]
  - GINGIVAL SWELLING [None]
  - DEPRESSION [None]
  - ANGER [None]
  - PAIN [None]
  - FACE OEDEMA [None]
